FAERS Safety Report 5119297-8 (Version None)
Quarter: 2006Q4

REPORT INFORMATION
  Report Type: 
  Country: None (occurrence: None)
  Receive Date: 20061003
  Receipt Date: 20060928
  Transmission Date: 20070319
  Serious: Yes (Hospitalization)
  Sender: FDA-Public Use
  Company Number: JP-SP-2006-02556

PATIENT

DRUGS (2)
  1. IMMUCYST [Suspect]
     Indication: BLADDER CANCER
     Route: 043
  2. IMMUCYST [Suspect]
     Route: 043

REACTIONS (2)
  - HYPERSENSITIVITY [None]
  - PYREXIA [None]
